FAERS Safety Report 5014579-2 (Version None)
Quarter: 2006Q2

REPORT INFORMATION
  Report Type: 
  Country: None (occurrence: None)
  Receive Date: 20060525
  Receipt Date: 20060515
  Transmission Date: 20061013
  Serious: Yes (Hospitalization)
  Sender: FDA-Public Use
  Company Number: 2006063901

PATIENT
  Sex: Male
  Weight: 79.3795 kg

DRUGS (4)
  1. XANAX [Suspect]
     Indication: INSOMNIA
     Dosage: AS NECESSARY  10-15 YEARS AGO
  2. XANAX [Suspect]
     Indication: STRESS AT WORK
     Dosage: AS NECESSARY  10-15 YEARS AGO
  3. XANAX [Suspect]
     Indication: INSOMNIA
     Dosage: 1 MG AS NECESSARY
     Dates: start: 20060501
  4. XANAX [Suspect]
     Indication: STRESS AT WORK
     Dosage: 1 MG AS NECESSARY
     Dates: start: 20060501

REACTIONS (5)
  - ATRIAL FIBRILLATION [None]
  - CIRCUMSTANCE OR INFORMATION CAPABLE OF LEADING TO MEDICATION ERROR [None]
  - HYPERSOMNIA [None]
  - INCORRECT DOSE ADMINISTERED [None]
  - NASOPHARYNGITIS [None]
